FAERS Safety Report 8693923 (Version 3)
Quarter: 2013Q4

REPORT INFORMATION
  Report Type: Spontaneous
  Country: US (occurrence: US)
  Receive Date: 20120731
  Receipt Date: 20131119
  Transmission Date: 20140711
  Serious: Yes (Hospitalization, Other)
  Sender: FDA-Public Use
  Company Number: US-PFIZER INC-2012181512

PATIENT
  Age: 2 Year
  Sex: Female
  Weight: 15 kg

DRUGS (2)
  1. DILANTIN [Suspect]
     Indication: CONVULSION
     Dosage: 100 MG, 1X/DAY (50 MG TWO TABS AT BED TIME)
     Route: 048
     Dates: start: 20000722
  2. DILANTIN [Suspect]
     Indication: CONVULSION
     Dosage: 250 MG, UNK
     Route: 042
     Dates: start: 20000722

REACTIONS (1)
  - Stevens-Johnson syndrome [Recovering/Resolving]
